FAERS Safety Report 5830867-1 (Version None)
Quarter: 2008Q3

REPORT INFORMATION
  Report Type: 
  Country: None (occurrence: None)
  Receive Date: 20080801
  Receipt Date: 20080109
  Transmission Date: 20090109
  Serious: No
  Sender: FDA-Public Use
  Company Number: US-BRISTOL-MYERS SQUIBB COMPANY-14035737

PATIENT
  Age: 69 Year
  Sex: Female
  Weight: 59 kg

DRUGS (12)
  1. COUMADIN [Suspect]
     Indication: ATRIAL FIBRILLATION
     Dosage: 1 DOSAGEFORM=2OR2.5MG(ABOUT 4 YEARS).PRESENT DOSE 2.5MG-8JAN08(LOT#EUH377A AND EXP DATE-09/2009)
     Route: 048
  2. LISINOPRIL [Concomitant]
  3. WELLBUTRIN [Concomitant]
     Dosage: FORMULATION-TABS
     Dates: start: 20070101
  4. ASPIRIN [Concomitant]
  5. LASIX [Concomitant]
  6. VERAPAMIL [Concomitant]
  7. MULTI-VITAMIN [Concomitant]
  8. FOSAMAX [Concomitant]
  9. VYTORIN [Concomitant]
  10. CITRACAL + D [Concomitant]
  11. DIAZEPAM [Concomitant]
  12. TRIAMTERENE AND HYDROCHLOROTHIAZIDE [Concomitant]

REACTIONS (2)
  - DIZZINESS [None]
  - INTERNATIONAL NORMALISED RATIO FLUCTUATION [None]
